FAERS Safety Report 7826497-2 (Version None)
Quarter: 2011Q4

REPORT INFORMATION
  Report Type: 
  Country: None (occurrence: None)
  Receive Date: 20111020
  Receipt Date: 20111018
  Transmission Date: 20120403
  Serious: No
  Sender: FDA-Public Use
  Company Number: US-B.I. PHARMACEUTICALS,INC./RIDGEFIELD-2011-BP-24530BP

PATIENT
  Age: 77 Year
  Sex: Male

DRUGS (6)
  1. LISINOPRIL [Concomitant]
  2. SIMVASTATIN [Concomitant]
  3. POTASSIUM [Concomitant]
  4. PRADAXA [Suspect]
     Indication: ATRIAL FIBRILLATION
  5. LASIX [Concomitant]
  6. METOPROLOL TARTRATE [Concomitant]

REACTIONS (1)
  - CHEST DISCOMFORT [None]
